FAERS Safety Report 4915404-8 (Version None)
Quarter: 2006Q1

REPORT INFORMATION
  Report Type: 
  Country: None (occurrence: None)
  Receive Date: 20060113
  Receipt Date: 20051005
  Transmission Date: 20060701
  Serious: No
  Sender: FDA-Public Use
  Company Number: 2005SP003355

PATIENT
  Age: 76 Year
  Sex: Female

DRUGS (6)
  1. LUNESTA [Suspect]
     Dosage: 3 MG;HS;ORAL
     Route: 048
     Dates: start: 20050901, end: 20051001
  2. THYROID THERAPY [Concomitant]
  3. SIMVASTATIN [Concomitant]
  4. WATER PILLS [Concomitant]
  5. BETA BLOCKING AGENTS [Concomitant]
  6. ASPIRIN [Concomitant]

REACTIONS (2)
  - DRUG INEFFECTIVE [None]
  - INSOMNIA [None]
